FAERS Safety Report 6646859-9 (Version None)
Quarter: 2010Q1

REPORT INFORMATION
  Report Type: 
  Country: None (occurrence: None)
  Receive Date: 20100323
  Receipt Date: 20100312
  Transmission Date: 20100710
  Serious: Yes (Other)
  Sender: FDA-Public Use
  Company Number: JP-PFIZER INC-2010033439

PATIENT
  Age: 69 Year
  Sex: Male

DRUGS (3)
  1. SOLU-MEDROL [Suspect]
     Dosage: 1 G/DAY
     Route: 042
     Dates: start: 20090223, end: 20090225
  2. SOLU-MEDROL [Suspect]
     Dosage: 120 MG/DAY
     Dates: start: 20090226
  3. AMBISOME [Concomitant]
     Dosage: UNK
     Route: 042

REACTIONS (1)
  - NEPHROGENIC DIABETES INSIPIDUS [None]
